FAERS Safety Report 5503872-2 (Version None)
Quarter: 2007Q4

REPORT INFORMATION
  Report Type: 
  Country: None (occurrence: None)
  Receive Date: 20071101
  Receipt Date: 20071025
  Transmission Date: 20080405
  Serious: Yes (Life-Threatening)
  Sender: FDA-Public Use
  Company Number: IT-ALLERGAN-0711842US

PATIENT
  Sex: Female

DRUGS (1)
  1. VISTABEX [Suspect]
     Indication: MUSCLE RELAXANT THERAPY
     Dosage: 50 UNITS, SINGLE
     Dates: start: 20070528, end: 20070528

REACTIONS (7)
  - DERMATOMYOSITIS [None]
  - DYSPHAGIA [None]
  - OEDEMA [None]
  - PRURITUS [None]
  - PYREXIA [None]
  - RASH [None]
  - TOXIC EPIDERMAL NECROLYSIS [None]
